FAERS Safety Report 11771456 (Version 1)
Quarter: 2015Q4

REPORT INFORMATION
  Report Type: Spontaneous
  Country: IT (occurrence: IT)
  Receive Date: 20151124
  Receipt Date: 20151124
  Transmission Date: 20160304
  Serious: Yes (Other)
  Sender: FDA-Public Use
  Company Number: IT-ACCORD-035570

PATIENT
  Age: 58 Year
  Sex: Male

DRUGS (14)
  1. TORVAST [Concomitant]
     Active Substance: ATORVASTATIN
  2. CISPLATIN ACCORD [Suspect]
     Active Substance: CISPLATIN
     Indication: LUNG NEOPLASM
     Route: 042
     Dates: start: 20150804, end: 20151105
  3. ALIMTA [Concomitant]
     Active Substance: PEMETREXED DISODIUM
     Route: 042
  4. ARIXTRA [Concomitant]
     Active Substance: FONDAPARINUX SODIUM
  5. TRIATEC [Concomitant]
     Active Substance: RAMIPRIL
  6. NEULASTA [Concomitant]
     Active Substance: PEGFILGRASTIM
  7. PEPTAZOL [Concomitant]
     Active Substance: PANTOPRAZOLE SODIUM
  8. ALLOPURINOL/ALLOPURINOL SODIUM [Concomitant]
  9. DOBETIN [Concomitant]
     Active Substance: CYANOCOBALAMIN
  10. FOLIDEX [Concomitant]
     Active Substance: FOLIC ACID
  11. EMEND [Concomitant]
     Active Substance: APREPITANT
  12. NATECAL [Concomitant]
     Active Substance: CALCIUM CARBONATE\CHOLECALCIFEROL
  13. SOLDESAM [Concomitant]
     Active Substance: DEXAMETHASONE
  14. DELTACORTENE [Concomitant]
     Active Substance: PREDNISONE

REACTIONS (6)
  - Bronchospasm [Recovered/Resolved]
  - Rash [Recovered/Resolved]
  - Tachycardia [Recovered/Resolved]
  - Oxygen saturation decreased [Recovered/Resolved]
  - Urticaria [Recovered/Resolved]
  - Pemphigoid [Recovered/Resolved]

NARRATIVE: CASE EVENT DATE: 20151105
